FAERS Safety Report 7755935-9 (Version None)
Quarter: 2011Q3

REPORT INFORMATION
  Report Type: 
  Country: None (occurrence: None)
  Receive Date: 20110916
  Receipt Date: 20100517
  Transmission Date: 20111222
  Serious: No
  Sender: FDA-Public Use
  Company Number: US-BAYER-201023374NA

PATIENT
  Age: 45 Year
  Sex: Female

DRUGS (1)
  1. MIRENA [Suspect]
     Indication: DYSMENORRHOEA
     Dosage: 20 MCG/24HR, UNK
     Route: 015
     Dates: start: 20100225

REACTIONS (5)
  - BREAST PAIN [None]
  - DEPRESSION [None]
  - BREAST TENDERNESS [None]
  - CRYING [None]
  - COITAL BLEEDING [None]
